FAERS Safety Report 8199084-7 (Version None)
Quarter: 2012Q1

REPORT INFORMATION
  Report Type: 
  Country: None (occurrence: None)
  Receive Date: 20120309
  Receipt Date: 20120307
  Transmission Date: 20120608
  Serious: Yes (Disabling)
  Sender: FDA-Public Use
  Company Number: GB-AMGEN-GBRSP2012014714

PATIENT
  Age: 74 Year
  Sex: Female
  Weight: 78.8 kg

DRUGS (11)
  1. OMEPRAZOLE [Concomitant]
     Dosage: 20 MG, UNK
  2. ATENOLOL [Concomitant]
     Dosage: 50 MG, UNK
     Route: 048
  3. DESMOPRESSIN ACETATE [Concomitant]
     Dosage: 100 MUG, UNK
     Route: 048
  4. ATORVASTATIN [Concomitant]
     Dosage: 10 MG, UNK
     Route: 048
  5. ASPIRIN [Concomitant]
     Dosage: 75 MG, UNK
  6. ACETAMINOPHEN AND CODEINE PHOSPHATE [Concomitant]
     Route: 048
  7. LEVOTHYROXINE SODIUM [Concomitant]
     Dosage: 125 MUG, UNK
     Route: 048
  8. PROLIA [Suspect]
     Indication: OSTEOPOROSIS
     Dosage: 60 MG, Q6MO
     Route: 058
     Dates: start: 20110711
  9. CALCIUM CARBONATE W/COLECALCIFEROL [Concomitant]
  10. PHENOXYMETHYLPENICILLIN [Concomitant]
     Dosage: 205 MG, UNK
  11. MORPHINE SULFATE [Concomitant]
     Dosage: 10 MG, UNK

REACTIONS (1)
  - CATARACT [None]
